FAERS Safety Report 4600922-2 (Version None)
Quarter: 2005Q1

REPORT INFORMATION
  Report Type: 
  Country: None (occurrence: None)
  Receive Date: 20050127
  Receipt Date: 20041029
  Transmission Date: 20050727
  Serious: No
  Sender: FDA-Public Use
  Company Number: USA041082050

PATIENT
  Sex: Female

DRUGS (7)
  1. STRATTERA [Suspect]
     Indication: DEPRESSION
     Dates: start: 20040501
  2. MINOCYCLINE HCL [Concomitant]
  3. METFORMIN [Concomitant]
  4. BUPROPION HCL [Concomitant]
  5. SPIRONOLACTONE [Concomitant]
  6. ZOLPIDEM TARTRATE [Concomitant]
  7. CLONAZEPAM [Concomitant]

REACTIONS (1)
  - ERYTHEMA NODOSUM [None]
